FAERS Safety Report 4552529-3 (Version None)
Quarter: 2005Q1

REPORT INFORMATION
  Report Type: 
  Country: None (occurrence: None)
  Receive Date: 20050114
  Receipt Date: 20040721
  Transmission Date: 20050727
  Serious: Yes (Hospitalization, Other)
  Sender: FDA-Public Use
  Company Number: US-GLAXOSMITHKLINE-A0519199A

PATIENT
  Sex: Female

DRUGS (1)
  1. IMITREX [Suspect]
     Route: 065

REACTIONS (2)
  - CEREBRAL HAEMORRHAGE [None]
  - VASCULITIS [None]
